FAERS Safety Report 24783981 (Version 3)
Quarter: 2025Q3

REPORT INFORMATION
  Report Type: Spontaneous
  Country: EU (occurrence: EU)
  Receive Date: 20241227
  Receipt Date: 20250810
  Transmission Date: 20251021
  Serious: Yes (Other)
  Sender: ALEXION PHARMACEUTICALS
  Company Number: EU-SA-2024SA380911

PATIENT
  Age: 11 Month
  Sex: Female
  Weight: 7.66 kg

DRUGS (2)
  1. BEYFORTUS [Suspect]
     Active Substance: NIRSEVIMAB-ALIP
     Indication: Immunisation
     Dosage: 100 MILLIGRAM, QD
     Route: 065
     Dates: start: 20240916, end: 20240916
  2. CHOLECALCIFEROL [Concomitant]
     Active Substance: CHOLECALCIFEROL
     Dosage: 2.000DROP (1/12 MILLILITRE) QD

REACTIONS (5)
  - Respiratory syncytial virus bronchiolitis [Recovered/Resolved with Sequelae]
  - Wheezing [Unknown]
  - Rales [Unknown]
  - Use of accessory respiratory muscles [Unknown]
  - Decreased appetite [Unknown]

NARRATIVE: CASE EVENT DATE: 20241219
